FAERS Safety Report 14360929 (Version 1)
Quarter: 2018Q1

REPORT INFORMATION
  Report Type: Spontaneous
  Country: US (occurrence: US)
  Receive Date: 20180107
  Receipt Date: 20180107
  Transmission Date: 20180509
  Serious: Yes (Other)
  Sender: FDA-Public Use
  Company Number: US-SHIRE-US201729349

PATIENT
  Age: 70 Year

DRUGS (1)
  1. FIRAZYR [Suspect]
     Active Substance: ICATIBANT ACETATE
     Indication: PRODUCT USED FOR UNKNOWN INDICATION
     Dosage: 30 MG, AS REQ^D
     Route: 065
     Dates: start: 20160915

REACTIONS (2)
  - Hereditary angioedema [Unknown]
  - Gait inability [Unknown]

NARRATIVE: CASE EVENT DATE: 20171109
